FAERS Safety Report 9034557 (Version 1)
Quarter: 2013Q1

REPORT INFORMATION
  Report Type: Spontaneous
  Country: US (occurrence: None)
  Receive Date: 20130115
  Receipt Date: 20130115
  Transmission Date: 20140127
  Serious: Yes (Other)
  Sender: FDA-Public Use
  Company Number: 2012-18066

PATIENT
  Age: 55 Year
  Sex: Male

DRUGS (5)
  1. CITALOPRAM (UNKNOWN) (CITALOPRAM) UNK, UNKUNK [Suspect]
     Indication: DEPRESSION
     Route: 048
  2. BENAZEPRIL (BENAZEPRIL) [Concomitant]
  3. NIFEDIPINE (NIFEDIPINE) [Concomitant]
  4. OMEPRAZOLE (OMEPRAZOLE) [Concomitant]
  5. WARFARIN (WARFARIN) [Concomitant]

REACTIONS (3)
  - Nightmare [None]
  - Abnormal dreams [None]
  - Anxiety [None]
